FAERS Safety Report 4848164-X (Version None)
Quarter: 2005Q4

REPORT INFORMATION
  Report Type: 
  Country: None (occurrence: None)
  Receive Date: 20051208
  Receipt Date: 20051012
  Transmission Date: 20060501
  Serious: Yes (Hospitalization)
  Sender: FDA-Public Use
  Company Number: AU-SANOFI-SYNTHELABO-F01200502114

PATIENT
  Sex: Female
  Weight: 81 kg

DRUGS (9)
  1. OXALIPLATIN [Suspect]
     Indication: RECTAL CANCER
     Route: 042
     Dates: start: 20050930, end: 20050930
  2. FLUOROURACIL [Suspect]
     Indication: RECTAL CANCER
     Dosage: CONTINUOUS INFUSION OF 225 MG/M2/DAY FOR 6 WEEKS
     Route: 041
     Dates: start: 20051011, end: 20051011
  3. RADIOTHERAPY [Concomitant]
     Dosage: 1.8 GY PER DAY
     Route: 050
     Dates: start: 20050906, end: 20050928
  4. LIPITOR [Concomitant]
  5. COVERSYL [Concomitant]
  6. LOPRESSOR [Concomitant]
  7. ASPIRIN [Concomitant]
  8. NILSTAT [Concomitant]
  9. KENALOG [Concomitant]

REACTIONS (13)
  - ANAEMIA [None]
  - ATRIAL FIBRILLATION [None]
  - DEHYDRATION [None]
  - GASTROENTERITIS RADIATION [None]
  - GASTROINTESTINAL HAEMORRHAGE [None]
  - INTESTINAL DILATATION [None]
  - MUCOSAL INFLAMMATION [None]
  - NEUTROPENIA [None]
  - ORAL INTAKE REDUCED [None]
  - PNEUMONIA ASPIRATION [None]
  - RESPIRATORY DISTRESS [None]
  - RESPIRATORY FAILURE [None]
  - THROMBOCYTOPENIA [None]
